FAERS Safety Report 5158216-5 (Version None)
Quarter: 2006Q4

REPORT INFORMATION
  Report Type: 
  Country: None (occurrence: None)
  Receive Date: 20061121
  Receipt Date: 20061121
  Transmission Date: 20070319
  Serious: Yes (Hospitalization)
  Sender: FDA-Public Use
  Company Number: None

PATIENT
  Sex: Male
  Weight: 84.8226 kg

DRUGS (2)
  1. DOXIL [Suspect]
     Indication: PROSTATE CANCER
     Dosage: 60 MG 1 Q 28 DAYS IV DRIP
     Route: 041
     Dates: start: 20060727, end: 20061116
  2. TAXOTERE [Suspect]
     Indication: PROSTATE CANCER
     Dosage: 60 MG 1,8,15 Q 28 DAYS IV DRIP
     Route: 041
     Dates: start: 20060727, end: 20061116

REACTIONS (2)
  - CATHETER RELATED COMPLICATION [None]
  - COLONIC FISTULA [None]
